FAERS Safety Report 10168811 (Version 1)
Quarter: 2014Q2

REPORT INFORMATION
  Report Type: Spontaneous
  Country: US (occurrence: None)
  Receive Date: 20140512
  Receipt Date: 20140512
  Transmission Date: 20141212
  Serious: Yes (Other)
  Sender: FDA-Public Use
  Company Number: None

PATIENT
  Age: 15 Year
  Sex: Female
  Weight: 48.7 kg

DRUGS (1)
  1. OMNITROPE [Suspect]
     Indication: TURNER^S SYNDROME
     Route: 058
     Dates: start: 20140311

REACTIONS (5)
  - Injection site pain [None]
  - Injection site bruising [None]
  - Tearfulness [None]
  - Medical device complication [None]
  - Device issue [None]
